FAERS Safety Report 13655045 (Version 3)
Quarter: 2017Q2

REPORT INFORMATION
  Report Type: Spontaneous
  Country: US (occurrence: US)
  Receive Date: 20170615
  Receipt Date: 20170628
  Transmission Date: 20170830
  Serious: Yes (Hospitalization)
  Sender: FDA-Public Use
  Company Number: US-UNITED THERAPEUTICS-UNT-2017-008528

PATIENT
  Age: 69 Year
  Sex: Female
  Weight: 84.35 kg

DRUGS (5)
  1. ELIQUIS [Concomitant]
     Active Substance: APIXABAN
     Indication: PRODUCT USED FOR UNKNOWN INDICATION
  2. REMODULIN [Suspect]
     Active Substance: TREPROSTINIL
     Indication: PULMONARY ARTERIAL HYPERTENSION
     Dosage: 0.04 ?G/KG, CONTINUING
     Route: 041
     Dates: start: 20160617
  3. REMODULIN [Suspect]
     Active Substance: TREPROSTINIL
     Dosage: 0.044 ?G/KG, CONTINUING
     Route: 041
  4. REMODULIN [Suspect]
     Active Substance: TREPROSTINIL
     Dosage: 0.048 ?G/KG, CONTINUING
     Route: 041
  5. REVATIO [Concomitant]
     Active Substance: SILDENAFIL CITRATE
     Indication: PRODUCT USED FOR UNKNOWN INDICATION

REACTIONS (5)
  - Herpes zoster [Unknown]
  - Headache [Unknown]
  - Pyrexia [Unknown]
  - Dyspnoea [Unknown]
  - Fluid overload [Unknown]

NARRATIVE: CASE EVENT DATE: 201706
